FAERS Safety Report 21092139 (Version 4)
Quarter: 2022Q4

REPORT INFORMATION
  Report Type: Report from Study
  Country: BR (occurrence: BR)
  Receive Date: 20220718
  Receipt Date: 20221013
  Transmission Date: 20230113
  Serious: Yes (Hospitalization)
  Sender: FDA-Public Use
  Company Number: BR-ABBVIE-22K-020-4452119-00

PATIENT
  Age: 57 Year
  Sex: Female
  Weight: 70 kg

DRUGS (7)
  1. RINVOQ [Suspect]
     Active Substance: UPADACITINIB
     Indication: Rheumatoid arthritis
     Dosage: STRENGTH WAS 15 MG
     Route: 048
     Dates: start: 20210904, end: 2022
  2. RINVOQ [Suspect]
     Active Substance: UPADACITINIB
     Indication: Rheumatoid arthritis
     Dosage: STRENGTH WAS 15 MG
     Route: 048
  3. ESCITALOPRAM OXALATE [Concomitant]
     Active Substance: ESCITALOPRAM OXALATE
     Indication: Depression
     Dosage: STRENGTH: 20 MG
  4. QUETIAPINE [Concomitant]
     Active Substance: QUETIAPINE
     Indication: Depression
     Dosage: 50MG IN THE MORNING AND AT NIGHT (STRENGTH: 50 MG)
  5. ALPRAZOLAM [Concomitant]
     Active Substance: ALPRAZOLAM
     Indication: Depression
     Dosage: 1.5 TABLET IN THE MORNING AND AT NIGHT (STRENGTH: 1.5 TABLET)
     Route: 048
  6. PREGABALIN [Concomitant]
     Active Substance: PREGABALIN
     Indication: Depression
     Dosage: 1 TABLET IN THE MORNING AND 2 AT NIGHT (3 TABLET)
     Route: 048
  7. DIPYRONE [Concomitant]
     Active Substance: DIPYRONE
     Indication: Pain
     Dosage: FREQUENCY-WHEN FEELS PAIN

REACTIONS (12)
  - Ophthalmic herpes zoster [Recovered/Resolved]
  - Herpes zoster [Recovered/Resolved]
  - General physical health deterioration [Unknown]
  - Blood pressure decreased [Unknown]
  - Cold sweat [Unknown]
  - Skin disorder [Unknown]
  - Ocular hyperaemia [Recovering/Resolving]
  - Eye swelling [Recovering/Resolving]
  - Paraesthesia [Recovering/Resolving]
  - Visual impairment [Recovering/Resolving]
  - Acne [Recovered/Resolved]
  - Pain [Unknown]

NARRATIVE: CASE EVENT DATE: 20220712
